FAERS Safety Report 11222150 (Version 7)
Quarter: 2016Q2

REPORT INFORMATION
  Report Type: Report from Study
  Country: CA (occurrence: CA)
  Receive Date: 20150626
  Receipt Date: 20160411
  Transmission Date: 20160815
  Serious: Yes (Hospitalization)
  Sender: FDA-Public Use
  Company Number: PHHY2015CA051568

PATIENT
  Age: 59 Year
  Sex: Female

DRUGS (4)
  1. SANDOSTATIN LAR DEPOT [Suspect]
     Active Substance: OCTREOTIDE ACETATE
     Indication: VASCULAR OCCLUSION
  2. SANDOSTATIN [Suspect]
     Active Substance: OCTREOTIDE ACETATE
     Indication: OVARIAN NEOPLASM
     Dosage: 150 UG, TID
     Route: 058
     Dates: start: 20150423
  3. SANDOSTATIN [Suspect]
     Active Substance: OCTREOTIDE ACETATE
     Indication: VASCULAR OCCLUSION
     Dosage: 150 UG, FOR 2 WEEKS
     Route: 058
     Dates: end: 201505
  4. SANDOSTATIN LAR DEPOT [Suspect]
     Active Substance: OCTREOTIDE ACETATE
     Indication: OVARIAN NEOPLASM
     Dosage: 20 MG, QMO (ONCE A MONTH)
     Route: 030
     Dates: start: 20150423

REACTIONS (15)
  - Leukopenia [Unknown]
  - Ascites [Unknown]
  - Urinary tract infection [Unknown]
  - Pneumonia [Unknown]
  - Faeces hard [Unknown]
  - Abdominal distension [Unknown]
  - Dyspnoea [Unknown]
  - Intestinal obstruction [Unknown]
  - Faeces pale [Unknown]
  - Lung disorder [Unknown]
  - Nervousness [Unknown]
  - Memory impairment [Unknown]
  - Constipation [Unknown]
  - Abdominal pain upper [Unknown]
  - Product use issue [Unknown]

NARRATIVE: CASE EVENT DATE: 2015
